FAERS Safety Report 9678326 (Version 1)
Quarter: 2013Q4

REPORT INFORMATION
  Report Type: Spontaneous
  Country: FR (occurrence: FR)
  Receive Date: 20131108
  Receipt Date: 20131108
  Transmission Date: 20140711
  Serious: Yes (Life-Threatening)
  Sender: FDA-Public Use
  Company Number: FR-B.I. PHARMACEUTICALS,INC./RIDGEFIELD-2013-FF-02664FF

PATIENT
  Age: 71 Year
  Sex: Female

DRUGS (3)
  1. PRADAXA [Suspect]
     Indication: ATRIAL FIBRILLATION
     Dosage: 220 MG
     Route: 048
     Dates: start: 201303
  2. MOPRAL [Suspect]
  3. TEGRETOL [Suspect]
     Dosage: 800 MG
     Route: 048

REACTIONS (1)
  - Deep vein thrombosis [Unknown]
